FAERS Safety Report 7084458-8 (Version None)
Quarter: 2010Q4

REPORT INFORMATION
  Report Type: 
  Country: None (occurrence: None)
  Receive Date: 20101104
  Receipt Date: 20101029
  Transmission Date: 20110411
  Serious: No
  Sender: FDA-Public Use
  Company Number: US-PFIZER INC-2010138248

PATIENT
  Sex: Female
  Weight: 69 kg

DRUGS (9)
  1. LYRICA [Suspect]
     Indication: FIBROMYALGIA
     Dosage: 150 MG, 3X/DAY
     Route: 048
     Dates: end: 20100101
  2. AMITRIPTYLINE [Concomitant]
     Indication: BIPOLAR I DISORDER
     Dosage: 150 MG, 1X/DAY, AT NIGHT
     Route: 048
  3. SOMA [Concomitant]
     Indication: FIBROMYALGIA
     Dosage: 350 MG, 3X/DAY
     Route: 048
     Dates: start: 20090101
  4. SOMA [Concomitant]
     Indication: ARTHRITIS
  5. SOMA [Concomitant]
     Indication: INTERVERTEBRAL DISC DISORDER
  6. PRAVASTATIN [Concomitant]
     Indication: BLOOD CHOLESTEROL ABNORMAL
     Dosage: 40 MG, 1X/DAY
     Route: 048
  7. LEVOTHYROXINE [Concomitant]
     Indication: THYROIDECTOMY
     Dosage: 0.075 MG, 1X/DAY
     Route: 048
  8. TAMSULOSIN [Concomitant]
     Indication: MICTURITION DISORDER
     Dosage: 0.4 MG, 1X/DAY
     Route: 048
  9. LORAZEPAM [Concomitant]
     Dosage: 2 MG, 1X/DAY
     Route: 048

REACTIONS (6)
  - FEELING ABNORMAL [None]
  - HYPERHIDROSIS [None]
  - INSOMNIA [None]
  - MALAISE [None]
  - PAIN [None]
  - PRESYNCOPE [None]
